FAERS Safety Report 18116185 (Version 1)
Quarter: 2020Q3

REPORT INFORMATION
  Report Type: Other
  Country: US (occurrence: US)
  Receive Date: 20200805
  Receipt Date: 20200805
  Transmission Date: 20201103
  Serious: No
  Sender: FDA-Public Use
  Company Number: US-FAGRON STERILE SERVICES-2088200

PATIENT
  Age: 80 Year
  Sex: Male
  Weight: 72.73 kg

DRUGS (1)
  1. AVELOX [Suspect]
     Active Substance: MOXIFLOXACIN HYDROCHLORIDE
     Dates: start: 20200629

REACTIONS (1)
  - Vitritis [None]
